FAERS Safety Report 24916191 (Version 1)
Quarter: 2025Q1

REPORT INFORMATION
  Report Type: Spontaneous
  Country: FR (occurrence: FR)
  Receive Date: 20250203
  Receipt Date: 20250203
  Transmission Date: 20250408
  Serious: Yes (Death, Other)
  Sender: Unknown Manufacturer
  Company Number: FR-KOANAAP-SML-FR-2025-00063

PATIENT
  Age: 54 Year
  Sex: Male

DRUGS (4)
  1. DOCETAXEL [Suspect]
     Active Substance: DOCETAXEL
     Indication: Adenocarcinoma gastric
  2. CISPLATIN [Suspect]
     Active Substance: CISPLATIN
     Indication: Adenocarcinoma gastric
  3. FLUOROURACIL [Suspect]
     Active Substance: FLUOROURACIL
     Indication: Adenocarcinoma gastric
  4. TINZAPARIN [Suspect]
     Active Substance: TINZAPARIN
     Indication: Adenocarcinoma gastric
     Route: 058

REACTIONS (2)
  - Disease progression [Fatal]
  - Drug ineffective [Unknown]
